FAERS Safety Report 22932740 (Version 3)
Quarter: 2024Q1

REPORT INFORMATION
  Report Type: Spontaneous
  Country: GB (occurrence: GB)
  Receive Date: 20230912
  Receipt Date: 20240103
  Transmission Date: 20240410
  Serious: Yes (Hospitalization)
  Sender: FDA-Public Use
  Company Number: GB-PFIZER INC-PV202300135287

PATIENT
  Age: 79 Year
  Sex: Female

DRUGS (1)
  1. ENBREL [Suspect]
     Active Substance: ETANERCEPT
     Indication: Rheumatoid arthritis
     Dosage: 50 MILLIGRAM, QWK
     Route: 058

REACTIONS (4)
  - Cholelithiasis [Not Recovered/Not Resolved]
  - Infection [Unknown]
  - Gastrointestinal disorder [Unknown]
  - Norovirus infection [Unknown]

NARRATIVE: CASE EVENT DATE: 20230101
